FAERS Safety Report 8167613-5 (Version None)
Quarter: 2012Q1

REPORT INFORMATION
  Report Type: 
  Country: None (occurrence: None)
  Receive Date: 20120227
  Receipt Date: 20120221
  Transmission Date: 20120608
  Serious: Yes (Other)
  Sender: FDA-Public Use
  Company Number: US-PFIZER INC-2011197827

PATIENT
  Sex: Female

DRUGS (12)
  1. RISPERDAL [Concomitant]
     Indication: BIPOLAR DISORDER
  2. METRONIDAZOLE [Concomitant]
     Indication: ANTIBIOTIC THERAPY
     Dosage: UNK
     Dates: start: 20070101
  3. DEPAKOTE [Concomitant]
     Indication: BIPOLAR DISORDER
     Dosage: UNK
     Dates: start: 20060101
  4. TORADOL [Concomitant]
     Indication: PAIN
     Dosage: UNK
     Dates: start: 20070101, end: 20090101
  5. CHANTIX [Suspect]
     Indication: SMOKING CESSATION THERAPY
     Dosage: STARTING PACK AND 1 MG CONTINUING MONTH PACK
     Dates: start: 20081219, end: 20090101
  6. DEPAKOTE [Concomitant]
     Indication: DEPRESSION
  7. ACETAMINOPHEN AND HYDROCODONE BITARTRATE [Concomitant]
     Indication: PAIN
     Dosage: UNK
     Dates: start: 20000101
  8. RISPERDAL [Concomitant]
     Indication: DEPRESSION
  9. BUTALBITAL AND CAFFEINE AND PARACETAMOL [Concomitant]
  10. RISPERDAL [Concomitant]
     Indication: BORDERLINE PERSONALITY DISORDER
     Dosage: UNK
     Dates: start: 20060101
  11. RISPERDAL [Concomitant]
     Indication: INSOMNIA
  12. BUTALBITAL ACETAMINOPHEN AND CAFFEINE [Concomitant]
     Indication: HEADACHE
     Dosage: UNK
     Dates: start: 20070101, end: 20100101

REACTIONS (3)
  - DEPRESSION [None]
  - SUICIDAL IDEATION [None]
  - BIPOLAR DISORDER [None]
